FAERS Safety Report 14478627 (Version 3)
Quarter: 2020Q3

REPORT INFORMATION
  Report Type: Report from Study
  Country: KR (occurrence: KR)
  Receive Date: 20180202
  Receipt Date: 20180209
  Transmission Date: 20201104
  Serious: Yes (Hospitalization)
  Sender: FDA-Public Use
  Company Number: KR-ASTRAZENECA-2018SE10807

PATIENT

DRUGS (9)
  1. MEDI4736 [Suspect]
     Active Substance: DURVALUMAB
     Indication: BILIARY CANCER METASTATIC
     Dosage: 1.12 G ON D1
     Route: 042
     Dates: start: 20170427
  2. GEMCITABINE. [Suspect]
     Active Substance: GEMCITABINE
     Indication: BILIARY CANCER METASTATIC
     Dosage: 1000 MG/M2 ON D1 AND D8
     Route: 042
     Dates: start: 20170427
  3. APIXABAN [Concomitant]
     Active Substance: APIXABAN
     Indication: ATRIAL FIBRILLATION
     Dosage: 5 MG
     Route: 048
  4. TAMSULOSIN [Concomitant]
     Active Substance: TAMSULOSIN
     Indication: HYPERTENSION
     Route: 048
  5. CISPLATIN. [Suspect]
     Active Substance: CISPLATIN
     Indication: BILIARY CANCER METASTATIC
     Dosage: 25 MG/M2 ON D1 AND D8
     Route: 042
     Dates: start: 20170427
  6. TREMELIMUMAB. [Suspect]
     Active Substance: TREMELIMUMAB
     Indication: BILIARY CANCER METASTATIC
     Dosage: 75 MG ON D1
     Route: 042
     Dates: start: 20170427
  7. BISOPROLOL [Concomitant]
     Active Substance: BISOPROLOL
     Indication: ATRIAL FIBRILLATION
     Route: 048
  8. BISOPROLOL [Concomitant]
     Active Substance: BISOPROLOL
     Indication: HYPERTENSION
     Route: 048
  9. FEROBA YOU [Concomitant]
     Indication: ANAEMIA
     Route: 048
     Dates: start: 20170824

REACTIONS (1)
  - Febrile neutropenia [Recovered/Resolved]

NARRATIVE: CASE EVENT DATE: 20171207
